FAERS Safety Report 12730356 (Version 1)
Quarter: 2016Q3

REPORT INFORMATION
  Report Type: Spontaneous
  Country: FR (occurrence: FR)
  Receive Date: 20160909
  Receipt Date: 20160909
  Transmission Date: 20161109
  Serious: Yes (Death, Other)
  Sender: FDA-Public Use
  Company Number: FR-GLAXOSMITHKLINE-FR2016GSK130912

PATIENT
  Age: 60 Year
  Sex: Male

DRUGS (14)
  1. DIOSMECTITE [Suspect]
     Active Substance: MONTMORILLONITE
     Dosage: 3 DF, 1D
     Route: 048
     Dates: start: 20160801, end: 20160803
  2. AERIUS [Suspect]
     Active Substance: DESLORATADINE
     Indication: PRODUCT USED FOR UNKNOWN INDICATION
     Dosage: 10 MG, 1D
     Route: 048
     Dates: start: 20160726, end: 20160803
  3. THYMOGLOBULINE [Suspect]
     Active Substance: LAPINE T-LYMPHOCYTE IMMUNE GLOBULIN
     Dosage: UNK
     Route: 042
     Dates: start: 20160730, end: 20160731
  4. ZYLORIC [Suspect]
     Active Substance: ALLOPURINOL
     Indication: PRODUCT USED FOR UNKNOWN INDICATION
     Dosage: UNK
     Route: 048
     Dates: end: 20160818
  5. NEORAL [Suspect]
     Active Substance: CYCLOSPORINE
     Indication: PRODUCT USED FOR UNKNOWN INDICATION
     Dosage: 400 MG, 1D
     Route: 048
     Dates: start: 20160812, end: 20160818
  6. GENTAMICINE [Concomitant]
     Active Substance: GENTAMICIN
     Indication: LUNG DISORDER
     Dosage: UNK
     Dates: start: 20160815
  7. ZELITREX [Suspect]
     Active Substance: VALACYCLOVIR HYDROCHLORIDE
     Indication: PRODUCT USED FOR UNKNOWN INDICATION
     Dosage: 500 MG, 1D
     Dates: start: 20160727, end: 20160822
  8. BISOPROLOL [Suspect]
     Active Substance: BISOPROLOL
     Indication: PRODUCT USED FOR UNKNOWN INDICATION
     Dosage: 1 DF, 1D
     Route: 048
     Dates: end: 20160822
  9. VFEND [Concomitant]
     Active Substance: VORICONAZOLE
     Indication: LUNG DISORDER
     Dosage: UNK
     Dates: start: 20160817, end: 20160822
  10. SANDIMMUN [Suspect]
     Active Substance: CYCLOSPORINE
     Indication: PRODUCT USED FOR UNKNOWN INDICATION
     Dosage: 220 MG, 1D
     Route: 042
     Dates: start: 20160801, end: 20160810
  11. PIPERACILLIN AND TAZOBACTAM [Concomitant]
     Active Substance: PIPERACILLIN SODIUM\TAZOBACTAM SODIUM
     Indication: LUNG DISORDER
     Dosage: UNK
  12. VANCOMYCINE [Concomitant]
     Active Substance: VANCOMYCIN
     Indication: LUNG DISORDER
     Dosage: UNK
     Dates: start: 20160815
  13. SIMVASTATINE [Suspect]
     Active Substance: SIMVASTATIN
     Indication: HYPERCHOLESTEROLAEMIA
     Dosage: 40 MG, 1D
     Route: 048
     Dates: end: 20160821
  14. TIORFAN [Suspect]
     Active Substance: RACECADOTRIL
     Indication: PRODUCT USED FOR UNKNOWN INDICATION
     Dosage: 300 MG, 1D
     Dates: start: 20160801, end: 20160803

REACTIONS (5)
  - Acute kidney injury [Fatal]
  - Shock [Fatal]
  - Renal tubular necrosis [Fatal]
  - Rhabdomyolysis [Fatal]
  - Confusional state [Fatal]

NARRATIVE: CASE EVENT DATE: 201608
